FAERS Safety Report 8287056-3 (Version None)
Quarter: 2012Q2

REPORT INFORMATION
  Report Type: 
  Country: None (occurrence: None)
  Receive Date: 20120416
  Receipt Date: 20120410
  Transmission Date: 20120825
  Serious: Yes (Other)
  Sender: FDA-Public Use
  Company Number: CA-US-EMD SERONO, INC.-7095950

PATIENT
  Sex: Female

DRUGS (5)
  1. REBIF [Suspect]
     Route: 058
     Dates: start: 20111108, end: 20111201
  2. OXYCONTIN [Concomitant]
  3. REBIF [Suspect]
     Indication: RELAPSING-REMITTING MULTIPLE SCLEROSIS
     Route: 058
     Dates: start: 20030101, end: 20080730
  4. OXYCONTIN [Concomitant]
  5. UNSPECIFIED MEDICATIONS [Concomitant]

REACTIONS (6)
  - OSTEOPOROSIS [None]
  - INJECTION SITE PAIN [None]
  - FOOT FRACTURE [None]
  - RIB FRACTURE [None]
  - ARTHRITIS [None]
  - MIGRAINE [None]
